FAERS Safety Report 16806510 (Version 2)
Quarter: 2019Q4

REPORT INFORMATION
  Report Type: Report from Study
  Country: FR (occurrence: FR)
  Receive Date: 20190913
  Receipt Date: 20191010
  Transmission Date: 20200122
  Serious: Yes (Hospitalization, Other)
  Sender: FDA-Public Use
  Company Number: FR-BIOMARINAP-FR-2019-125543

PATIENT

DRUGS (5)
  1. OROZAMUDOL [Concomitant]
     Active Substance: TRAMADOL
     Indication: PAIN
     Dosage: 50 MILLIGRAM
  2. UVEDOSE [Concomitant]
     Active Substance: CHOLECALCIFEROL
     Indication: VITAMIN D DEFICIENCY
  3. LOVENOX [LEVOFLOXACIN] [Concomitant]
     Active Substance: LEVOFLOXACIN
     Indication: THROMBOSIS PROPHYLAXIS
  4. DOLIPRANE [Concomitant]
     Active Substance: ACETAMINOPHEN
     Indication: PAIN
     Dosage: 500 MILLIGRAM
  5. NAGLAZYME [Suspect]
     Active Substance: GALSULFASE
     Indication: MUCOPOLYSACCHARIDOSIS VI
     Dosage: 1 MILLIGRAM/KILOGRAM, QW
     Route: 042
     Dates: start: 20051208

REACTIONS (1)
  - Brain stem syndrome [Recovered/Resolved]

NARRATIVE: CASE EVENT DATE: 20190207
